FAERS Safety Report 7278267-4 (Version None)
Quarter: 2011Q1

REPORT INFORMATION
  Report Type: 
  Country: None (occurrence: None)
  Receive Date: 20110207
  Receipt Date: 20110128
  Transmission Date: 20110831
  Serious: Yes (Death)
  Sender: FDA-Public Use
  Company Number: US-GENZYME-CLOF-1001387

PATIENT
  Sex: Male
  Weight: 6.2 kg

DRUGS (5)
  1. MELPHALAN [Suspect]
     Indication: STEM CELL TRANSPLANT
     Dosage: 140 MG/M2, ONCE ON DAY -2
     Route: 065
     Dates: start: 20071016, end: 20071016
  2. MYCOPHENOLATE MOFETIL [Concomitant]
     Indication: PROPHYLAXIS AGAINST GRAFT VERSUS HOST DISEASE
     Dosage: DAY -3
     Route: 042
     Dates: start: 20071015
  3. CAMPATH [Suspect]
     Indication: STEM CELL TRANSPLANT
     Dosage: 0.3 MG/KG, QD
     Route: 065
     Dates: start: 20071007, end: 20071010
  4. CYCLOSPORINE [Concomitant]
     Indication: PROPHYLAXIS AGAINST GRAFT VERSUS HOST DISEASE
     Dosage: CONTINUOUS INFUSION ON DAY -3
     Route: 041
     Dates: start: 20071015
  5. CLOLAR [Suspect]
     Indication: STEM CELL TRANSPLANT
     Dosage: 40 MG/M2, QDX5 ON DAYS -7 TO -3
     Route: 042
     Dates: start: 20071011, end: 20071015

REACTIONS (1)
  - RENAL IMPAIRMENT [None]
